FAERS Safety Report 16192303 (Version 1)
Quarter: 2019Q2

REPORT INFORMATION
  Report Type: Spontaneous
  Country: US (occurrence: US)
  Receive Date: 20190412
  Receipt Date: 20190412
  Transmission Date: 20190711
  Serious: No
  Sender: FDA-Public Use
  Company Number: US-SA-2018SA116737

PATIENT
  Sex: Female
  Weight: 87.08 kg

DRUGS (1)
  1. AUBAGIO [Suspect]
     Active Substance: TERIFLUNOMIDE
     Indication: MULTIPLE SCLEROSIS
     Dosage: 14 MG,QD
     Route: 048

REACTIONS (9)
  - Fatigue [Unknown]
  - Decreased appetite [Unknown]
  - Paraesthesia [Unknown]
  - Diarrhoea [Unknown]
  - Weight fluctuation [Unknown]
  - Depression [Unknown]
  - Weight decreased [Unknown]
  - Alopecia [Unknown]
  - Asthenia [Unknown]

NARRATIVE: CASE EVENT DATE: 2018
